FAERS Safety Report 15777937 (Version 1)
Quarter: 2018Q4

REPORT INFORMATION
  Report Type: Spontaneous
  Country: US (occurrence: US)
  Receive Date: 20181231
  Receipt Date: 20181231
  Transmission Date: 20190205
  Serious: Yes (Hospitalization)
  Sender: FDA-Public Use
  Company Number: None

PATIENT
  Age: 39 Year
  Sex: Female

DRUGS (6)
  1. GANIRELIX [Concomitant]
     Active Substance: GANIRELIX
     Dates: start: 20180928
  2. MENOPUR [Concomitant]
     Active Substance: FOLLITROPIN\LUTEINIZING HORMONE
     Dates: start: 20180904
  3. OXYCODONE [Concomitant]
     Active Substance: OXYCODONE
     Dates: start: 20180904
  4. CLOMID [Concomitant]
     Active Substance: CLOMIPHENE CITRATE
     Dates: start: 20180904
  5. HUMIRA [Suspect]
     Active Substance: ADALIMUMAB
     Indication: PSORIASIS
     Dosage: ?          OTHER FREQUENCY:QOWK;?
     Route: 058
     Dates: start: 20180809
  6. FOLLISTIM [Concomitant]
     Active Substance: FOLLITROPIN
     Dates: start: 20180904

REACTIONS (1)
  - Product dose omission [None]
